FAERS Safety Report 19777030 (Version 1)
Quarter: 2021Q3

REPORT INFORMATION
  Report Type: Spontaneous
  Country: US (occurrence: US)
  Receive Date: 20210902
  Receipt Date: 20210902
  Transmission Date: 20211014
  Serious: No
  Sender: FDA-Public Use
  Company Number: US-BEH-2021135439

PATIENT
  Sex: Female

DRUGS (9)
  1. SYMBICORT [Concomitant]
     Active Substance: BUDESONIDE\FORMOTEROL FUMARATE DIHYDRATE
  2. HIZENTRA [Suspect]
     Active Substance: HUMAN IMMUNOGLOBULIN G
     Indication: PSORIASIS
     Dosage: 10 GRAM, QW
     Route: 058
     Dates: start: 2010
  3. PRIMIDONE. [Concomitant]
     Active Substance: PRIMIDONE
     Dosage: 50 MILLIGRAM
  4. RESTASIS [Concomitant]
     Active Substance: CYCLOSPORINE
  5. TRAZODONE HYDROCHLORIDE. [Concomitant]
     Active Substance: TRAZODONE HYDROCHLORIDE
  6. LINZESS [Concomitant]
     Active Substance: LINACLOTIDE
  7. FLUDROCORTISONE ACETATE. [Concomitant]
     Active Substance: FLUDROCORTISONE ACETATE
  8. MONTELUKAST SODIUM. [Concomitant]
     Active Substance: MONTELUKAST SODIUM
  9. PROPRANOLOL HCL [Concomitant]
     Active Substance: PROPRANOLOL HYDROCHLORIDE

REACTIONS (3)
  - Off label use [Unknown]
  - Infusion site pain [Recovered/Resolved]
  - No adverse event [Unknown]
